FAERS Safety Report 18710603 (Version 1)
Quarter: 2021Q1

REPORT INFORMATION
  Report Type: Other
  Country: DE (occurrence: DE)
  Receive Date: 20210107
  Receipt Date: 20210107
  Transmission Date: 20210419
  Serious: Yes (Death)
  Sender: FDA-Public Use
  Company Number: DE-HEALTHCARE PHARMACEUTICALS LTD.-2104045

PATIENT
  Age: 65 Year
  Sex: Female

DRUGS (1)
  1. DOXORUBICIN HYDROCHLORIDE. [Suspect]
     Active Substance: DOXORUBICIN HYDROCHLORIDE
     Indication: NEUROENDOCRINE CARCINOMA OF THE SKIN
     Route: 065

REACTIONS (1)
  - Drug ineffective [Fatal]
